FAERS Safety Report 8578570-1 (Version None)
Quarter: 2012Q3

REPORT INFORMATION
  Report Type: 
  Country: None (occurrence: None)
  Receive Date: 20120726
  Receipt Date: 20120712
  Transmission Date: 20120928
  Serious: Yes (Other)
  Sender: FDA-Public Use
  Company Number: 2012MA008593

PATIENT
  Age: 26 Year
  Sex: Female
  Weight: 60.3284 kg

DRUGS (1)
  1. MICONAZOLE NITRATE [Suspect]
     Indication: PRODUCT USED FOR UNKNOWN INDICATION
     Dosage: VAGINAL
     Route: 067
     Dates: start: 20120705, end: 20120705

REACTIONS (1)
  - METRORRHAGIA [None]
